FAERS Safety Report 9324906 (Version 1)
Quarter: 2013Q2

REPORT INFORMATION
  Report Type: Spontaneous
  Country: US (occurrence: US)
  Receive Date: 20130603
  Receipt Date: 20130603
  Transmission Date: 20140414
  Serious: Yes (Other)
  Sender: FDA-Public Use
  Company Number: US-WATSON-2013-09286

PATIENT
  Age: 61 Year
  Sex: Male

DRUGS (4)
  1. KADIAN (WATSON LABORATORIES) [Suspect]
     Indication: PSORIATIC ARTHROPATHY
     Dosage: 100 MG, BID
     Route: 048
     Dates: start: 20130128
  2. KADIAN (WATSON LABORATORIES) [Suspect]
     Dosage: 30 MG, BID
     Route: 048
  3. LISINOPRIL [Concomitant]
     Indication: HYPERTENSION
     Dosage: 10 MG, DAILY
     Route: 048
  4. OXYCODONE                          /00045603/ [Concomitant]
     Indication: PSORIATIC ARTHROPATHY
     Dosage: 30 MG, Q8H
     Route: 048

REACTIONS (2)
  - Hypersensitivity [Recovered/Resolved]
  - Pharyngeal oedema [Recovered/Resolved]
